FAERS Safety Report 6903187-1 (Version None)
Quarter: 2010Q3

REPORT INFORMATION
  Report Type: 
  Country: None (occurrence: None)
  Receive Date: 20100803
  Receipt Date: 20080620
  Transmission Date: 20110219
  Serious: No
  Sender: FDA-Public Use
  Company Number: US-PFIZER INC-2008053227

PATIENT
  Sex: Male
  Weight: 59.1 kg

DRUGS (6)
  1. LYRICA [Suspect]
     Indication: FIBROMYALGIA
     Dates: start: 20080601, end: 20080619
  2. GABAPENTIN [Concomitant]
  3. IBUPROFEN [Concomitant]
  4. PROZAC [Concomitant]
  5. PRILOSEC [Concomitant]
  6. HYDROCODONE BITARTRATE [Concomitant]

REACTIONS (4)
  - DYSPHONIA [None]
  - DYSPNOEA [None]
  - NECK PAIN [None]
  - OROPHARYNGEAL PAIN [None]
